FAERS Safety Report 9579355 (Version 1)
Quarter: 2013Q4

REPORT INFORMATION
  Report Type: Spontaneous
  Country: US (occurrence: US)
  Receive Date: 20131001
  Receipt Date: 20131001
  Transmission Date: 20140711
  Serious: No
  Sender: FDA-Public Use
  Company Number: US-AMGEN-USASP2013017455

PATIENT
  Age: 55 Year
  Sex: Female
  Weight: 77.1 kg

DRUGS (11)
  1. ENBREL [Suspect]
     Indication: PSORIASIS
     Dosage: 50 MG, QWK
     Route: 058
  2. SIMVASTATIN [Concomitant]
     Dosage: 80 MG, UNK
  3. IRON [Concomitant]
     Dosage: UNK
  4. FISH OIL [Concomitant]
     Dosage: UNK
  5. MULTIVITAMINS, PLAIN [Concomitant]
     Dosage: UNK
  6. METANX [Concomitant]
     Dosage: UNK
  7. METFORMIN [Concomitant]
     Dosage: 1000 MG, UNK
  8. GLIMEPIRIDE [Concomitant]
     Dosage: 01 MG, UNK
  9. BENICAR [Concomitant]
     Dosage: 20 MG, UNK
  10. OMEPRAZOLE [Concomitant]
     Dosage: 20 MG, UNK
  11. BENZOCAINE [Concomitant]
     Dosage: 5 %, UNK

REACTIONS (1)
  - Drug ineffective [Unknown]
